FAERS Safety Report 6053243-8 (Version None)
Quarter: 2009Q1

REPORT INFORMATION
  Report Type: 
  Country: None (occurrence: None)
  Receive Date: 20090127
  Receipt Date: 20090122
  Transmission Date: 20090719
  Serious: Yes (Other)
  Sender: FDA-Public Use
  Company Number: SE-AVENTIS-200910759GDDC

PATIENT
  Age: 73 Year
  Sex: Male

DRUGS (4)
  1. ARAVA [Suspect]
     Indication: RHEUMATOID ARTHRITIS
     Route: 048
     Dates: start: 20080128
  2. ALGANEX [Concomitant]
     Dosage: DOSE: UNK
  3. PREDNISOLONE [Concomitant]
     Dosage: DOSE: UNK
  4. PIROXICAM [Concomitant]
     Dosage: DOSE: UNK

REACTIONS (1)
  - VENOUS THROMBOSIS LIMB [None]
